FAERS Safety Report 4332160-5 (Version None)
Quarter: 2004Q1

REPORT INFORMATION
  Report Type: 
  Country: None (occurrence: None)
  Receive Date: 20040329
  Receipt Date: 20040315
  Transmission Date: 20041129
  Serious: Yes (Other)
  Sender: FDA-Public Use
  Company Number: 2004017249

PATIENT
  Age: 66 Year
  Sex: Male

DRUGS (1)
  1. VIAGRA [Suspect]
     Indication: ILL-DEFINED DISORDER
     Dosage: 200 MG ORAL
     Route: 048

REACTIONS (4)
  - ALCOHOL USE [None]
  - BLINDNESS TRANSIENT [None]
  - COLOUR BLINDNESS [None]
  - TRANSIENT ISCHAEMIC ATTACK [None]
